FAERS Safety Report 6344671-1 (Version None)
Quarter: 2009Q3

REPORT INFORMATION
  Report Type: 
  Country: None (occurrence: None)
  Receive Date: 20090821
  Receipt Date: 20090512
  Transmission Date: 20100115
  Serious: No
  Sender: FDA-Public Use
  Company Number: 8046211

PATIENT
  Age: 56 Year
  Sex: Female
  Weight: 81.6 kg

DRUGS (10)
  1. CIMZIA [Suspect]
     Indication: CROHN'S DISEASE
     Dosage: 400 MG SC
     Route: 058
     Dates: start: 20090112
  2. CHROMIUM PICOLINATE [Concomitant]
  3. TRIAMTERENE AND HYDROCHLOROTHIAZIDE [Concomitant]
  4. SYNTHROID [Concomitant]
  5. CALCIUM CITRATE WITH VITAMIN D [Concomitant]
  6. METOPROLOL TARTRATE [Concomitant]
  7. CLIMARA [Concomitant]
  8. LOVASTATIN [Concomitant]
  9. ASCORBIC ACID [Concomitant]
  10. VITAMIN D [Concomitant]

REACTIONS (1)
  - RASH GENERALISED [None]
